FAERS Safety Report 21321630 (Version 1)
Quarter: 2022Q3

REPORT INFORMATION
  Report Type: Spontaneous
  Country: IT (occurrence: None)
  Receive Date: 20220912
  Receipt Date: 20220912
  Transmission Date: 20221026
  Serious: Yes (Hospitalization)
  Sender: FDA-Public Use
  Company Number: 2022A309360

PATIENT
  Age: 74 Year
  Sex: Female

DRUGS (6)
  1. QUETIAPINE [Suspect]
     Active Substance: QUETIAPINE
     Dosage: 300.0MG UNKNOWN
     Route: 048
     Dates: start: 20220808, end: 20220808
  2. LORAZEPAM [Suspect]
     Active Substance: LORAZEPAM
     Dosage: 1 MG
     Dates: start: 20220808, end: 20220808
  3. CLOTHIAPINE [Suspect]
     Active Substance: CLOTHIAPINE
     Dosage: 40 MG 1 CP
     Route: 048
     Dates: start: 20220808, end: 20220808
  4. OXCARBAZEPINE [Suspect]
     Active Substance: OXCARBAZEPINE
     Dosage: 600 MG
     Route: 048
     Dates: start: 20220808, end: 20220808
  5. FUROSEMIDE [Suspect]
     Active Substance: FUROSEMIDE
     Dosage: 25 MG
     Route: 048
     Dates: start: 20220808, end: 20220808
  6. DIAZEPAM [Suspect]
     Active Substance: DIAZEPAM
     Dosage: 15 GTT
     Route: 048
     Dates: start: 20220808, end: 20220808

REACTIONS (2)
  - Sopor [Recovering/Resolving]
  - Product administration error [Recovering/Resolving]

NARRATIVE: CASE EVENT DATE: 20220808
